FAERS Safety Report 5097907-1 (Version None)
Quarter: 2006Q3

REPORT INFORMATION
  Report Type: 
  Country: None (occurrence: None)
  Receive Date: 20060905
  Receipt Date: 20060823
  Transmission Date: 20061208
  Serious: Yes (Other)
  Sender: FDA-Public Use
  Company Number: A-US2006-12952

PATIENT
  Age: 59 Year
  Sex: Female
  Weight: 65.5 kg

DRUGS (2)
  1. TRACLEER [Suspect]
     Indication: PULMONARY HYPERTENSION
     Dosage: SEE IMAGE
     Route: 048
     Dates: start: 20050729, end: 20050827
  2. TRACLEER [Suspect]
     Indication: PULMONARY HYPERTENSION
     Dosage: SEE IMAGE
     Route: 048
     Dates: start: 20050828

REACTIONS (6)
  - COUGH [None]
  - HAEMOPTYSIS [None]
  - LOWER RESPIRATORY TRACT INFECTION [None]
  - METASTASES TO CHEST WALL [None]
  - SMALL CELL LUNG CANCER METASTATIC [None]
  - WEIGHT DECREASED [None]
